FAERS Safety Report 11240608 (Version 1)
Quarter: 2015Q3

REPORT INFORMATION
  Report Type: Spontaneous
  Country: US (occurrence: None)
  Receive Date: 20150701
  Receipt Date: 20150701
  Transmission Date: 20151125
  Serious: Yes (Life-Threatening, Hospitalization)
  Sender: FDA-Public Use
  Company Number: None

PATIENT
  Age: 67 Year
  Sex: Male
  Weight: 65.9 kg

DRUGS (4)
  1. HEPARIN/SODIUM CHLORIDE [Suspect]
     Active Substance: HEPARIN SODIUM\SODIUM CHLORIDE
     Indication: DEEP VEIN THROMBOSIS
     Route: 042
     Dates: start: 20150419, end: 20150610
  2. WARFARIN [Suspect]
     Active Substance: WARFARIN
     Indication: DEEP VEIN THROMBOSIS
     Route: 048
     Dates: start: 19970601, end: 20150401
  3. HEPARIN/SODIUM CHLORIDE [Suspect]
     Active Substance: HEPARIN SODIUM\SODIUM CHLORIDE
     Indication: AORTIC VALVE REPLACEMENT
     Route: 042
     Dates: start: 20150419, end: 20150610
  4. WARFARIN [Suspect]
     Active Substance: WARFARIN
     Indication: AORTIC VALVE REPLACEMENT
     Route: 048
     Dates: start: 19970601, end: 20150401

REACTIONS (8)
  - Neoplasm malignant [None]
  - Haemorrhage [None]
  - Haemoglobin decreased [None]
  - International normalised ratio increased [None]
  - Hypotension [None]
  - Dyspnoea [None]
  - Chest pain [None]
  - Haemothorax [None]

NARRATIVE: CASE EVENT DATE: 20150420
